FAERS Safety Report 26069884 (Version 1)
Quarter: 2025Q4

REPORT INFORMATION
  Report Type: Spontaneous
  Country: US (occurrence: US)
  Receive Date: 20251120
  Receipt Date: 20251120
  Transmission Date: 20260118
  Serious: No
  Sender: CATALYST PHARMA
  Company Number: US-CATALYST PHARMACEUTICALS-US-CATA-25-01418

PATIENT
  Age: 8 Year
  Sex: Male
  Weight: 24.49 kg

DRUGS (9)
  1. AGAMREE [Suspect]
     Active Substance: VAMOROLONE
     Indication: Duchenne muscular dystrophy
     Dosage: 3.2 ML DAILY
     Route: 048
     Dates: start: 20240504, end: 2024
  2. AGAMREE [Suspect]
     Active Substance: VAMOROLONE
     Dosage: 3.4 ML ONCE A DAY
     Route: 048
     Dates: start: 20241116
  3. CHILDREN^S MULTIVITAMIN [Concomitant]
     Indication: Hypovitaminosis
     Dosage: 1 TABLET DAILY
     Route: 065
  4. CULTURELLE [Concomitant]
     Active Substance: LACTOBACILLUS RHAMNOSUS
     Indication: Gastrointestinal disorder prophylaxis
     Dosage: AS NEEDED
     Route: 065
  5. EXONDYS 51 [Concomitant]
     Active Substance: ETEPLIRSEN
     Indication: Duchenne muscular dystrophy
     Dosage: 2 ML WEEKLY
     Route: 065
  6. MIRALAX [Concomitant]
     Active Substance: POLYETHYLENE GLYCOL 3350
     Indication: Constipation
     Dosage: 17 G AS NEEDED
     Route: 065
  7. CHILDREN^S DHA FISH OIL [Concomitant]
     Indication: Cardiovascular event prophylaxis
     Dosage: 2.5 ML DAILY
     Route: 065
  8. VITAMIN D3 [Concomitant]
     Active Substance: CHOLECALCIFEROL
     Indication: Bone disorder
     Dosage: 2000 IU DAILY
     Route: 065
  9. VITAMIN D3 [Concomitant]
     Active Substance: CHOLECALCIFEROL
     Indication: Prophylaxis

REACTIONS (1)
  - Gastroenteritis viral [Recovered/Resolved]

NARRATIVE: CASE EVENT DATE: 20250901
